FAERS Safety Report 8224108-8 (Version None)
Quarter: 2012Q1

REPORT INFORMATION
  Report Type: 
  Country: None (occurrence: None)
  Receive Date: 20120321
  Receipt Date: 20120313
  Transmission Date: 20120608
  Serious: Yes (Other)
  Sender: FDA-Public Use
  Company Number: BE-UCBSA-053405

PATIENT
  Age: 21 Year
  Sex: Male
  Weight: 72 kg

DRUGS (2)
  1. KEPPRA [Suspect]
     Route: 048
     Dates: start: 20111214, end: 20120206
  2. ABILIFY [Concomitant]
     Dosage: UNKNOWN DOSE

REACTIONS (4)
  - SUICIDAL IDEATION [None]
  - EMOTIONAL DISORDER [None]
  - PSYCHOTIC DISORDER [None]
  - SUSPICIOUSNESS [None]
